FAERS Safety Report 7507872-2 (Version None)
Quarter: 2011Q2

REPORT INFORMATION
  Report Type: 
  Country: None (occurrence: None)
  Receive Date: 20110527
  Receipt Date: 20110516
  Transmission Date: 20111010
  Serious: No
  Sender: FDA-Public Use
  Company Number: US-BIOGENIDEC-2011BI018917

PATIENT
  Sex: Female

DRUGS (4)
  1. COPAXONE [Concomitant]
     Indication: MULTIPLE SCLEROSIS
  2. REBIF [Concomitant]
     Indication: MULTIPLE SCLEROSIS
  3. AVONEX [Suspect]
     Indication: MULTIPLE SCLEROSIS
     Route: 030
     Dates: start: 20050728, end: 20060705
  4. AVONEX [Suspect]
     Route: 030

REACTIONS (6)
  - TREMOR [None]
  - INFLUENZA LIKE ILLNESS [None]
  - HYPOAESTHESIA [None]
  - INTERVERTEBRAL DISC PROTRUSION [None]
  - MUSCLE TIGHTNESS [None]
  - DEPRESSION [None]
